FAERS Safety Report 5181410-4 (Version None)
Quarter: 2006Q4

REPORT INFORMATION
  Report Type: 
  Country: None (occurrence: None)
  Receive Date: 20061220
  Receipt Date: 20060110
  Transmission Date: 20070319
  Serious: No
  Sender: FDA-Public Use
  Company Number: US-GLAXOSMITHKLINE-A0588475A

PATIENT
  Age: 27 Year
  Sex: Female

DRUGS (2)
  1. COMMIT [Suspect]
     Dates: start: 20060108, end: 20060108
  2. EQUATE NICOTINE GUM 4 MG, MINT [Suspect]
     Dates: start: 20060107, end: 20060107

REACTIONS (3)
  - DYSPEPSIA [None]
  - PHARYNGOLARYNGEAL PAIN [None]
  - STOMACH DISCOMFORT [None]
